FAERS Safety Report 7964101-3 (Version None)
Quarter: 2011Q4

REPORT INFORMATION
  Report Type: 
  Country: None (occurrence: None)
  Receive Date: 20111208
  Receipt Date: 20111129
  Transmission Date: 20120403
  Serious: Yes (Hospitalization)
  Sender: FDA-Public Use
  Company Number: CA-SP-2011-04547

PATIENT
  Age: 5 Year
  Sex: Male

DRUGS (1)
  1. TUBERSOL [Suspect]
     Indication: TUBERCULIN TEST
     Route: 023
     Dates: start: 20101012, end: 20101012

REACTIONS (4)
  - PALLOR [None]
  - LOSS OF CONSCIOUSNESS [None]
  - FATIGUE [None]
  - HYPERHIDROSIS [None]
